FAERS Safety Report 20689679 (Version 1)
Quarter: 2022Q2

REPORT INFORMATION
  Report Type: Spontaneous
  Country: US (occurrence: None)
  Receive Date: 20220407
  Receipt Date: 20220407
  Transmission Date: 20220720
  Serious: Yes (Disabling)
  Sender: FDA-Public Use
  Company Number: None

PATIENT
  Sex: Female

DRUGS (1)
  1. AMIODARONE HYDROCHLORIDE [Suspect]
     Active Substance: AMIODARONE HYDROCHLORIDE
     Indication: Heart rate irregular
     Dosage: OTHER QUANTITY : .50 TABLET(S);?FREQUENCY : TWICE A DAY;?
     Route: 048
     Dates: start: 20210818, end: 20210904

REACTIONS (8)
  - Tremor [None]
  - Eating disorder [None]
  - Tremor [None]
  - Dyskinesia [None]
  - Fall [None]
  - Dysphemia [None]
  - Aphasia [None]
  - Tremor [None]

NARRATIVE: CASE EVENT DATE: 20210818
